FAERS Safety Report 7514673-8 (Version None)
Quarter: 2011Q2

REPORT INFORMATION
  Report Type: 
  Country: None (occurrence: None)
  Receive Date: 20110601
  Receipt Date: 20110201
  Transmission Date: 20111010
  Serious: Yes (Other)
  Sender: FDA-Public Use
  Company Number: US-BAYER-201015391NA

PATIENT
  Age: 25 Year
  Sex: Female
  Weight: 63 kg

DRUGS (9)
  1. YASMIN [Suspect]
     Indication: ORAL CONTRACEPTION
     Dosage: UNK UNK, UNK
     Route: 048
     Dates: start: 20030901, end: 20060101
  2. YAZ [Suspect]
     Dosage: UNK
     Dates: end: 20080101
  3. PANTOPRAZOLE [Concomitant]
     Dosage: UNK
     Dates: start: 20080307
  4. AZITHROMYCIN [Concomitant]
     Dosage: UNK
     Dates: start: 20080207
  5. YASMIN [Suspect]
     Indication: DYSFUNCTIONAL UTERINE BLEEDING
     Dosage: UNK
     Dates: end: 20080101
  6. DROSPIRENONE AND ETHINYL ESTRADIOL [Suspect]
     Indication: ORAL CONTRACEPTION
     Dosage: UNK UNK, UNK
     Route: 048
     Dates: start: 20030901, end: 20060101
  7. YAZ [Suspect]
     Indication: ORAL CONTRACEPTION
     Dosage: UNK UNK, UNK
     Route: 048
     Dates: start: 20030901, end: 20060101
  8. DROSPIRENONE AND ETHINYL ESTRADIOL [Suspect]
     Indication: DYSFUNCTIONAL UTERINE BLEEDING
     Dosage: UNK
     Dates: end: 20080101
  9. ASTHMA BREATHING MEDS: +#8220;VARIOUS TYPES OF INHALERS^ [Concomitant]
     Indication: ASTHMA
     Dosage: UNK
     Dates: start: 19950101

REACTIONS (9)
  - DISCOMFORT [None]
  - ABDOMINAL PAIN [None]
  - CHOLECYSTITIS CHRONIC [None]
  - VOMITING [None]
  - ABDOMINAL DISTENSION [None]
  - ERUCTATION [None]
  - GALLBLADDER DISORDER [None]
  - PYREXIA [None]
  - NAUSEA [None]
